FAERS Safety Report 4383036-9 (Version None)
Quarter: 2004Q2

REPORT INFORMATION
  Report Type: 
  Country: None (occurrence: None)
  Receive Date: 20040527
  Receipt Date: 20030607
  Transmission Date: 20050107
  Serious: Yes (Other)
  Sender: FDA-Public Use
  Company Number: 2003024889

PATIENT
  Sex: Male
  Weight: 72.5755 kg

DRUGS (4)
  1. VIRACEPT [Suspect]
     Indication: ACQUIRED IMMUNODEFICIENCY SYNDROME
     Dosage: (TID), ORAL
     Route: 048
     Dates: start: 20000101
  2. ZIDOVUDINE [Concomitant]
  3. INDINAVIR SULFATE (INDINAVIR SULFATE) [Concomitant]
  4. NITROGLYCERIN [Concomitant]

REACTIONS (1)
  - NEPHROLITHIASIS [None]
